FAERS Safety Report 18652568 (Version 1)
Quarter: 2020Q4

REPORT INFORMATION
  Report Type: Spontaneous
  Country: US (occurrence: US)
  Receive Date: 20201223
  Receipt Date: 20201223
  Transmission Date: 20210114
  Serious: Yes (Other)
  Sender: FDA-Public Use
  Company Number: US-AMGEN-USASP2020204977

PATIENT

DRUGS (1)
  1. TRASTUZUMAB. [Suspect]
     Active Substance: TRASTUZUMAB
     Indication: BREAST CANCER
     Dosage: UNK
     Route: 065

REACTIONS (10)
  - Cardiac sarcoidosis [Unknown]
  - Myocarditis [Unknown]
  - Lymphoma [Unknown]
  - Viral myocarditis [Unknown]
  - Eosinophilic myocarditis [Unknown]
  - Hypertrophic cardiomyopathy [Unknown]
  - Myocardial calcification [Unknown]
  - Ischaemic cardiomyopathy [Unknown]
  - Adverse event [Unknown]
  - Histoplasmosis [Unknown]
